FAERS Safety Report 8631499 (Version 4)
Quarter: 2012Q4

REPORT INFORMATION
  Report Type: 
  Country: US (occurrence: US)
  Receive Date: 20120624
  Receipt Date: 20120905
  Transmission Date: 20130627
  Serious: Yes (Other)
  Sender: FDA-Public Use
  Company Number: US-TEVA-344337USA

PATIENT
  Age: 32 Year
  Sex: Female
  Weight: 77.18 kg

DRUGS (5)
  1. PARAGARD 380A [Suspect]
     Indication: CONTRACEPTION
     Route: 015
     Dates: start: 20110920, end: 201206
  2. OXYCONTIN [Concomitant]
     Indication: PAIN
  3. OXYCODONE [Concomitant]
     Indication: PAIN
  4. COUMADIN [Concomitant]
     Indication: THROMBOSIS
  5. LOVENOX [Concomitant]
     Indication: THROMBOSIS

REACTIONS (7)
  - Ovarian cyst ruptured [Unknown]
  - Neoplasm [Unknown]
  - Abdominal pain [Recovered/Resolved]
  - Menstruation irregular [Not Recovered/Not Resolved]
  - Device expulsion [Recovered/Resolved]
  - Medical device complication [Recovered/Resolved]
  - Dyspareunia [Not Recovered/Not Resolved]
